FAERS Safety Report 5771913-3 (Version None)
Quarter: 2008Q2

REPORT INFORMATION
  Report Type: 
  Country: None (occurrence: None)
  Receive Date: 20080528
  Receipt Date: 20080212
  Transmission Date: 20081010
  Serious: Yes (Hospitalization)
  Sender: FDA-Public Use
  Company Number: AECAN200800033

PATIENT
  Age: 69 Year
  Sex: Male
  Weight: 91.5 kg

DRUGS (11)
  1. GAMUNEX [Suspect]
     Indication: MYASTHENIA GRAVIS
     Dosage: 80 GM; QD; IV
     Route: 042
     Dates: start: 20070908, end: 20080205
  2. CORTICOSTEROID NOS [Concomitant]
  3. NORVASC [Concomitant]
  4. ALTACE [Concomitant]
  5. GRAVOL TAB [Concomitant]
  6. PREDNISONE [Concomitant]
  7. FOLIC ACID [Concomitant]
  8. MESTINON [Concomitant]
  9. TRAVOPROST [Concomitant]
  10. CIPRO /00697201/ [Concomitant]
  11. TIMOLOL MALEATE [Concomitant]

REACTIONS (13)
  - ABDOMINAL DISTENSION [None]
  - BLOOD AMYLASE INCREASED [None]
  - BLOOD LACTATE DEHYDROGENASE INCREASED [None]
  - CONTUSION [None]
  - HAEMOGLOBINURIA [None]
  - HAEMOLYSIS [None]
  - HAEMOLYTIC ANAEMIA [None]
  - LIVER FUNCTION TEST ABNORMAL [None]
  - MELAENA [None]
  - NAUSEA [None]
  - OCULAR ICTERUS [None]
  - VOMITING [None]
  - WHITE BLOOD CELL COUNT INCREASED [None]
